FAERS Safety Report 4707877-0 (Version None)
Quarter: 2005Q2

REPORT INFORMATION
  Report Type: 
  Country: None (occurrence: None)
  Receive Date: 20050629
  Receipt Date: 20050317
  Transmission Date: 20051028
  Serious: No
  Sender: FDA-Public Use
  Company Number: 05P-163-0294402-00

PATIENT
  Age: 78 Year
  Sex: Female
  Weight: 72.5755 kg

DRUGS (11)
  1. HUMIRA [Suspect]
     Indication: RHEUMATOID ARTHRITIS
     Dosage: 40 MG, 1 IN 2 WK, SUBCUTANEOUS
     Route: 058
     Dates: start: 20041001, end: 20050301
  2. LEVOTHYROXINE [Concomitant]
  3. CALCIUM CARBONATE [Concomitant]
  4. POTASSIUM CHLORIDE [Concomitant]
  5. PYRIDOXINE HYDROCHLORIDE [Concomitant]
  6. AMLODIPINE BESYLATE [Concomitant]
  7. INDAPAMIDE [Concomitant]
  8. METOCLOPRAMIDE [Concomitant]
  9. TRAMADOL HCL [Concomitant]
  10. PANTOPRAZOLE [Concomitant]
  11. ESTROGENS CONJUGATED [Concomitant]

REACTIONS (3)
  - PRURITUS GENERALISED [None]
  - RASH GENERALISED [None]
  - STOMATITIS [None]
